FAERS Safety Report 20224367 (Version 1)
Quarter: 2021Q4

REPORT INFORMATION
  Report Type: Spontaneous
  Country: JP (occurrence: JP)
  Receive Date: 20211223
  Receipt Date: 20211223
  Transmission Date: 20220303
  Serious: Yes (Other)
  Sender: FDA-Public Use
  Company Number: JP-LANTHEUS-LMI-2020-00548

PATIENT
  Age: 85 Year

DRUGS (1)
  1. NEUROLITE [Suspect]
     Active Substance: BICISATE DIHYDROCHLORIDE
     Indication: Product used for unknown indication
     Dosage: UNK
     Route: 042
     Dates: start: 201712, end: 201712

REACTIONS (4)
  - Renal impairment [Unknown]
  - Anaemia [Unknown]
  - Platelet count decreased [Unknown]
  - Illness [Unknown]
